FAERS Safety Report 23803831 (Version 1)
Quarter: 2024Q2

REPORT INFORMATION
  Report Type: Spontaneous
  Country: GB (occurrence: GB)
  Receive Date: 20240501
  Receipt Date: 20240501
  Transmission Date: 20240716
  Serious: Yes (Hospitalization)
  Sender: FDA-Public Use
  Company Number: None

PATIENT
  Age: 59 Year
  Sex: Female
  Weight: 39.85 kg

DRUGS (4)
  1. VORICONAZOLE [Suspect]
     Active Substance: VORICONAZOLE
     Dosage: UNK
  2. POSACONAZOLE [Concomitant]
     Active Substance: POSACONAZOLE
  3. SERTRALINE [Concomitant]
     Active Substance: SERTRALINE HYDROCHLORIDE
  4. TRIAZOLAM [Concomitant]
     Active Substance: TRIAZOLAM

REACTIONS (3)
  - Psychogenic seizure [Unknown]
  - Tremor [Unknown]
  - Fatigue [Unknown]
